FAERS Safety Report 8098864-6 (Version None)
Quarter: 2012Q1

REPORT INFORMATION
  Report Type: 
  Country: None (occurrence: None)
  Receive Date: 20120129
  Receipt Date: 20110923
  Transmission Date: 20120608
  Serious: No
  Sender: FDA-Public Use
  Company Number: US-ABBOTT-11P-163-0857666-00

PATIENT
  Age: 48 Year
  Sex: Male
  Weight: 88.53 kg

DRUGS (1)
  1. HUMIRA [Suspect]
     Indication: PSORIATIC ARTHROPATHY
     Dates: start: 20100101

REACTIONS (5)
  - INCORRECT PRODUCT STORAGE [None]
  - INJECTION SITE URTICARIA [None]
  - INJECTION SITE HAEMORRHAGE [None]
  - POOR QUALITY DRUG ADMINISTERED [None]
  - INJECTION SITE NODULE [None]
